FAERS Safety Report 9631621 (Version 1)
Quarter: 2013Q4

REPORT INFORMATION
  Report Type: Spontaneous
  Country: US (occurrence: US)
  Receive Date: 20131018
  Receipt Date: 20131018
  Transmission Date: 20140711
  Serious: Yes (Other)
  Sender: FDA-Public Use
  Company Number: US-ASTELLAS-2013US010725

PATIENT
  Age: 78 Year
  Sex: Male

DRUGS (2)
  1. VESICARE [Suspect]
     Indication: PRODUCT USED FOR UNKNOWN INDICATION
     Dosage: 5 MG, UID/QD
     Route: 048
     Dates: start: 20131001, end: 20131006
  2. VESICARE [Suspect]
     Dosage: 10 MG, UID/QD
     Route: 048
     Dates: start: 20131007

REACTIONS (1)
  - Blood glucose increased [Unknown]
